FAERS Safety Report 16686591 (Version 1)
Quarter: 2019Q3

REPORT INFORMATION
  Report Type: Spontaneous
  Country: CN (occurrence: CN)
  Receive Date: 20190809
  Receipt Date: 20190809
  Transmission Date: 20191004
  Serious: Yes (Other)
  Sender: FDA-Public Use
  Company Number: CN-ROCHE-2360265

PATIENT
  Age: 62 Year
  Sex: Male

DRUGS (20)
  1. IMRECOXIB. [Concomitant]
     Active Substance: IMRECOXIB
     Route: 048
     Dates: start: 20190501, end: 20190505
  2. ISONIAZID. [Concomitant]
     Active Substance: ISONIAZID
     Route: 048
  3. RUTINA [Concomitant]
     Dosage: 2 UNIT NOT REPORTED
     Route: 048
     Dates: start: 20190617, end: 20190617
  4. RECOMBINANT HUMAN THROMBOPOIETIN [Concomitant]
     Active Substance: THROMBOPOIETIN
     Dosage: 15000U
     Route: 058
     Dates: start: 20190717, end: 20190721
  5. RABEPRAZOLE SODIUM. [Concomitant]
     Active Substance: RABEPRAZOLE SODIUM
     Route: 048
     Dates: start: 20190501, end: 20190719
  6. ESOMEPRAZOLE SODIUM. [Concomitant]
     Active Substance: ESOMEPRAZOLE SODIUM
     Route: 042
     Dates: start: 20190717, end: 20190718
  7. ESOMEPRAZOLE SODIUM. [Concomitant]
     Active Substance: ESOMEPRAZOLE SODIUM
     Route: 042
     Dates: start: 20190719
  8. CALCIUM CARBONATE. [Concomitant]
     Active Substance: CALCIUM CARBONATE
     Route: 048
     Dates: start: 20190722
  9. CICLOSPORIN [Concomitant]
     Active Substance: CYCLOSPORINE
     Route: 048
     Dates: start: 20190723
  10. TOCILIZUMAB. [Suspect]
     Active Substance: TOCILIZUMAB
     Indication: RHEUMATOID ARTHRITIS
     Route: 065
  11. HEMOCOAGULASE [Concomitant]
     Dosage: 1KU
     Route: 030
     Dates: start: 20190719
  12. CELECOXIB. [Concomitant]
     Active Substance: CELECOXIB
     Route: 048
     Dates: start: 20190505
  13. RIFAMPICIN [Concomitant]
     Active Substance: RIFAMPIN
     Route: 048
  14. VITAMIN D3 [Concomitant]
     Active Substance: CHOLECALCIFEROL
     Route: 048
     Dates: start: 20190722
  15. INDAPAMIDE. [Concomitant]
     Active Substance: INDAPAMIDE
     Route: 048
     Dates: start: 20190501, end: 20190717
  16. METHOTREXATE. [Concomitant]
     Active Substance: METHOTREXATE
     Route: 048
     Dates: start: 20190505, end: 20190716
  17. CERVUS AND CUCUMIS POLYPEPTIDE [Concomitant]
     Active Substance: POLYPEPTIDES
     Route: 065
     Dates: start: 20190502, end: 20190508
  18. VITAMIN C [Concomitant]
     Active Substance: ASCORBIC ACID
     Route: 048
     Dates: start: 20190717, end: 20190717
  19. MIZOLASTINE [Concomitant]
     Active Substance: MIZOLASTINE
     Route: 048
     Dates: start: 20190717, end: 20190717
  20. METHYLPREDNISOLONE. [Concomitant]
     Active Substance: METHYLPREDNISOLONE
     Route: 065
     Dates: start: 20190719

REACTIONS (1)
  - Platelet count decreased [Recovering/Resolving]
